FAERS Safety Report 9550135 (Version 1)
Quarter: 2013Q3

REPORT INFORMATION
  Report Type: Spontaneous
  Country: US (occurrence: US)
  Receive Date: 20130924
  Receipt Date: 20130924
  Transmission Date: 20140515
  Serious: Yes (Hospitalization, Other)
  Sender: FDA-Public Use
  Company Number: US-RB-058573-13

PATIENT
  Age: 54 Year
  Sex: Male

DRUGS (2)
  1. SUBOXONE FILM [Suspect]
     Indication: PAIN
     Dosage: SUBOXONE FILM
     Route: 060
     Dates: start: 20130909
  2. ALCOHOL [Suspect]
     Indication: PRODUCT USED FOR UNKNOWN INDICATION
     Dosage: DOSING  DETAILS UNKNOWN
     Route: 065

REACTIONS (5)
  - Off label use [Recovered/Resolved]
  - Alcohol abuse [Recovered/Resolved]
  - Euphoric mood [Unknown]
  - Alcoholism [Not Recovered/Not Resolved]
  - Condition aggravated [Not Recovered/Not Resolved]
